FAERS Safety Report 21460135 (Version 2)
Quarter: 2022Q4

REPORT INFORMATION
  Report Type: Spontaneous
  Country: DE (occurrence: DE)
  Receive Date: 20221014
  Receipt Date: 20221118
  Transmission Date: 20230113
  Serious: Yes (Other)
  Sender: FDA-Public Use
  Company Number: DE-ALLERGAN-2233729US

PATIENT
  Sex: Female
  Weight: 84 kg

DRUGS (4)
  1. MESALAMINE [Suspect]
     Active Substance: MESALAMINE
     Indication: Colitis ulcerative
     Dosage: UNK
     Route: 054
     Dates: start: 202209
  2. BUDESONIDE [Suspect]
     Active Substance: BUDESONIDE
     Indication: Colitis ulcerative
     Dosage: UNK
     Route: 054
     Dates: start: 202209
  3. VALDOXAN [Suspect]
     Active Substance: AGOMELATINE
     Indication: Off label use
     Dosage: 25 MG, QD
     Route: 048
     Dates: start: 202209
  4. VALDOXAN [Suspect]
     Active Substance: AGOMELATINE
     Indication: Sleep disorder

REACTIONS (9)
  - Urinary tract inflammation [Unknown]
  - Post-traumatic stress disorder [Unknown]
  - Sleep disorder [Unknown]
  - Autoimmune thyroiditis [Unknown]
  - Colitis ulcerative [Unknown]
  - Depression [Unknown]
  - Abdominal pain upper [Recovered/Resolved]
  - Nausea [Recovered/Resolved]
  - Vomiting [Recovered/Resolved]

NARRATIVE: CASE EVENT DATE: 20220922
